FAERS Safety Report 10690402 (Version 1)
Quarter: 2015Q1

REPORT INFORMATION
  Report Type: Spontaneous
  Country: US (occurrence: None)
  Receive Date: 20150102
  Receipt Date: 20150102
  Transmission Date: 20150720
  Serious: Yes (Disabling, Other)
  Sender: FDA-Public Use
  Company Number: None

PATIENT
  Age: 66 Year
  Sex: Female
  Weight: 92.08 kg

DRUGS (1)
  1. METOPROLOL TARTRATE 25 MGS [Suspect]
     Active Substance: METOPROLOL TARTRATE
     Indication: ATRIAL FIBRILLATION
     Dosage: 1 TABLET BY MOUTH 2XD
     Route: 048
     Dates: start: 20141107, end: 20150101

REACTIONS (7)
  - Dizziness [None]
  - Peripheral swelling [None]
  - Arthralgia [None]
  - Restlessness [None]
  - Alopecia [None]
  - Dyspnoea [None]
  - Joint swelling [None]

NARRATIVE: CASE EVENT DATE: 20141107
